FAERS Safety Report 7557190-1 (Version None)
Quarter: 2011Q2

REPORT INFORMATION
  Report Type: 
  Country: None (occurrence: None)
  Receive Date: 20110616
  Receipt Date: 20110616
  Transmission Date: 20111010
  Serious: Yes (Other)
  Sender: FDA-Public Use
  Company Number: None

PATIENT
  Sex: Male
  Weight: 58.9676 kg

DRUGS (1)
  1. EPIDUO [Suspect]
     Indication: ACNE
     Dosage: APPLIED SPARINGLY ONCE A DAY TOP
     Route: 061
     Dates: start: 20110607, end: 20110612

REACTIONS (1)
  - DERMATITIS CONTACT [None]
